FAERS Safety Report 16839137 (Version 3)
Quarter: 2019Q4

REPORT INFORMATION
  Report Type: Report from Study
  Country: CA (occurrence: CA)
  Receive Date: 20190923
  Receipt Date: 20191112
  Transmission Date: 20200122
  Serious: Yes (Other)
  Sender: FDA-Public Use
  Company Number: CA-EMD SERONO-9117115

PATIENT
  Sex: Female

DRUGS (2)
  1. MAVENCLAD [Suspect]
     Active Substance: CLADRIBINE
     Indication: MULTIPLE SCLEROSIS
     Dosage: FIRST ROUND THERAPY
     Route: 048
     Dates: start: 20181005
  2. ALYSENA [Concomitant]
     Indication: CONTRACEPTION
     Dosage: PILL, 20 PLUS 100 MICROGRAMS
     Route: 048

REACTIONS (1)
  - Bone giant cell tumour [Recovered/Resolved]
